FAERS Safety Report 23553452 (Version 2)
Quarter: 2024Q2

REPORT INFORMATION
  Report Type: Spontaneous
  Country: SE (occurrence: SE)
  Receive Date: 20240222
  Receipt Date: 20240404
  Transmission Date: 20240716
  Serious: Yes (Other)
  Sender: FDA-Public Use
  Company Number: SE-ALNYLAM PHARMACEUTICALS, INC.-ALN-2023-006002

PATIENT

DRUGS (7)
  1. ONPATTRO [Suspect]
     Active Substance: PATISIRAN SODIUM
     Indication: Acquired ATTR amyloidosis
     Dosage: UNK
     Route: 065
     Dates: start: 20210325, end: 20231026
  2. ATORVASTATIN [Suspect]
     Active Substance: ATORVASTATIN
     Indication: Ischaemic heart disease prophylaxis
     Dosage: 40 MILLIGRAM
     Route: 065
     Dates: start: 20200901
  3. ASPIRIN [Concomitant]
     Active Substance: ASPIRIN
     Indication: Ischaemic heart disease prophylaxis
     Dosage: 75 MILLIGRAM, QD
     Route: 065
     Dates: start: 20200901
  4. KANDROZID [Concomitant]
     Indication: Hypertension
     Dosage: 8 MILLIGRAM
     Route: 065
     Dates: start: 20200901
  5. KANDROZID [Concomitant]
     Indication: Cardiac failure
  6. VITAMIN A [Concomitant]
     Active Substance: VITAMIN A
     Indication: Vitamin supplementation
     Dosage: UNK, QD
     Route: 065
  7. ACETAMINOPHEN [Concomitant]
     Active Substance: ACETAMINOPHEN
     Indication: Premedication
     Dosage: UNK, Q3W
     Route: 065
     Dates: start: 20210325, end: 20231026

REACTIONS (3)
  - Hepatitis toxic [Recovered/Resolved]
  - Hepatic fibrosis [Recovered/Resolved]
  - Transaminases increased [Unknown]

NARRATIVE: CASE EVENT DATE: 20231205
